FAERS Safety Report 7298908-5 (Version None)
Quarter: 2011Q1

REPORT INFORMATION
  Report Type: 
  Country: None (occurrence: None)
  Receive Date: 20110217
  Receipt Date: 20110207
  Transmission Date: 20110831
  Serious: Yes (Hospitalization, Other)
  Sender: FDA-Public Use
  Company Number: PHHY2010US27256

PATIENT
  Sex: Male
  Weight: 82 kg

DRUGS (8)
  1. EXJADE [Suspect]
     Dosage: 500 MG, QD
     Route: 048
  2. KLONOPIN [Concomitant]
  3. EXJADE [Suspect]
     Indication: IRON METABOLISM DISORDER
     Dosage: 1500 MG, PER DAY
     Route: 048
     Dates: start: 20100413
  4. LIPITOR [Concomitant]
  5. LEXAPRO [Concomitant]
  6. NITROGLYCERIN [Concomitant]
  7. ASPIRIN [Concomitant]
  8. ZYPREXA [Concomitant]

REACTIONS (13)
  - VOMITING [None]
  - COLON INJURY [None]
  - LARGE INTESTINAL ULCER [None]
  - PAIN [None]
  - POST PROCEDURAL HAEMORRHAGE [None]
  - RECTAL HAEMORRHAGE [None]
  - INFLUENZA [None]
  - URINARY CYSTECTOMY [None]
  - BLADDER INJURY [None]
  - EAR INFECTION [None]
  - PROSTATE CANCER [None]
  - NAUSEA [None]
  - DIARRHOEA [None]
